FAERS Safety Report 10157080 (Version 1)
Quarter: 2014Q2

REPORT INFORMATION
  Report Type: Spontaneous
  Country: US (occurrence: US)
  Receive Date: 20140507
  Receipt Date: 20140507
  Transmission Date: 20141212
  Serious: No
  Sender: FDA-Public Use
  Company Number: US-PFIZER INC-2014123912

PATIENT
  Age: 28 Year
  Sex: Female
  Weight: 72.6 kg

DRUGS (2)
  1. LYRICA [Suspect]
     Indication: RESTLESS LEGS SYNDROME
     Dosage: 75 MG, 2X/DAY
     Dates: start: 201312, end: 201402
  2. LYRICA [Suspect]
     Indication: NERVE COMPRESSION

REACTIONS (2)
  - Insomnia [Unknown]
  - Paraesthesia [Unknown]
